FAERS Safety Report 9785694 (Version 1)
Quarter: 2013Q4

REPORT INFORMATION
  Report Type: Spontaneous
  Country: KR (occurrence: KR)
  Receive Date: 20131227
  Receipt Date: 20131227
  Transmission Date: 20140711
  Serious: Yes (Other)
  Sender: FDA-Public Use
  Company Number: KR-BAYER-2013-155426

PATIENT
  Sex: 0

DRUGS (1)
  1. NEXAVAR [Suspect]
     Route: 048

REACTIONS (1)
  - Cardiotoxicity [None]
